FAERS Safety Report 8927618 (Version 1)
Quarter: 2012Q4

REPORT INFORMATION
  Report Type: 
  Country: JP (occurrence: JP)
  Receive Date: 20121127
  Receipt Date: 20121127
  Transmission Date: 20130627
  Serious: Yes (Other)
  Sender: FDA-Public Use
  Company Number: JP-ASTELLAS-2012JP010954

PATIENT
  Age: 69 Year
  Sex: Female

DRUGS (7)
  1. PROGRAF [Suspect]
     Indication: COLITIS ULCERATIVE
     Route: 065
  2. ANTIBIOTICS [Concomitant]
     Indication: DIVERTICULITIS
     Route: 065
  3. 5 ASA [Concomitant]
     Indication: COLITIS ULCERATIVE
     Route: 065
  4. PREDNISOLONE [Concomitant]
     Indication: COLITIS ULCERATIVE
     Dosage: 80 mg, Unknown/D
     Route: 065
  5. GANCICLOVIR [Concomitant]
     Indication: CYTOMEGALOVIRUS TEST POSITIVE
     Route: 065
  6. CORTICOSTEROID NOS [Concomitant]
     Indication: COLITIS ULCERATIVE
     Route: 054
  7. CICLOSPORIN [Concomitant]
     Indication: COLITIS ULCERATIVE
     Route: 042

REACTIONS (2)
  - Drug ineffective [Unknown]
  - Colitis ulcerative [Unknown]
